FAERS Safety Report 7815443-3 (Version None)
Quarter: 2011Q4

REPORT INFORMATION
  Report Type: 
  Country: None (occurrence: None)
  Receive Date: 20111014
  Receipt Date: 20111005
  Transmission Date: 20120403
  Serious: Yes (Other)
  Sender: FDA-Public Use
  Company Number: PHHY2011BR88023

PATIENT
  Sex: Female

DRUGS (2)
  1. FORMOTEROL FUMARATE [Suspect]
     Indication: ASTHMA
     Dosage: UNK UKN, BID
     Dates: start: 20110529
  2. COMBIVENT [Concomitant]
     Indication: ASTHMA
     Dosage: UNK UKN, UNK

REACTIONS (1)
  - SWELLING FACE [None]
